FAERS Safety Report 4280343-5 (Version None)
Quarter: 2004Q1

REPORT INFORMATION
  Report Type: 
  Country: None (occurrence: None)
  Receive Date: 20040126
  Receipt Date: 20040108
  Transmission Date: 20041129
  Serious: Yes (Death, Life-Threatening, Hospitalization)
  Sender: FDA-Public Use
  Company Number: 2004-FF-00002FF

PATIENT
  Sex: Male

DRUGS (2)
  1. VIRAMUNE [Suspect]
     Indication: HIV INFECTION
     Dosage: 200 MG (200 MG, 1 IN 1 D), PO
     Route: 048
     Dates: start: 20031210
  2. KALETRA [Concomitant]

REACTIONS (15)
  - ARTHRALGIA [None]
  - BACTERIAL INFECTION [None]
  - CONJUNCTIVITIS [None]
  - DYSPHAGIA [None]
  - EATING DISORDER [None]
  - GASTRIC MUCOSAL LESION [None]
  - GENERAL PHYSICAL CONDITION ABNORMAL [None]
  - HEADACHE [None]
  - LUNG DISORDER [None]
  - MUCOUS MEMBRANE DISORDER [None]
  - OESOPHAGEAL DISORDER [None]
  - PARAESTHESIA [None]
  - PYREXIA [None]
  - SEPTIC SHOCK [None]
  - TOXIC EPIDERMAL NECROLYSIS [None]
